FAERS Safety Report 5863025-5 (Version None)
Quarter: 2008Q3

REPORT INFORMATION
  Report Type: 
  Country: None (occurrence: None)
  Receive Date: 20080819
  Receipt Date: 20071115
  Transmission Date: 20090109
  Serious: Yes (Hospitalization)
  Sender: FDA-Public Use
  Company Number: 17839

PATIENT
  Age: 71 Year
  Sex: Female
  Weight: 97.5234 kg

DRUGS (4)
  1. LEUCOVORIN CALCIUM [Suspect]
     Indication: COLON CANCER
     Dates: start: 20070129, end: 20070129
  2. ARANESP [Suspect]
     Dates: start: 20070129, end: 20070129
  3. ELOXATIN [Suspect]
     Indication: COLON CANCER
     Dosage: 168 MG FORTNIGHTLY IV
     Route: 042
     Dates: start: 20070129, end: 20070129
  4. FLUOROURACIL [Suspect]
     Indication: COLON CANCER
     Dates: start: 20070129, end: 20070129

REACTIONS (1)
  - ANAPHYLACTOID REACTION [None]
